FAERS Safety Report 4433497-1 (Version None)
Quarter: 2004Q3

REPORT INFORMATION
  Report Type: 
  Country: None (occurrence: None)
  Receive Date: 20040824
  Receipt Date: 20040809
  Transmission Date: 20050211
  Serious: Yes (Death, Life-Threatening, Hospitalization)
  Sender: FDA-Public Use
  Company Number: 2004AP03400

PATIENT
  Age: 50 Year
  Sex: Male

DRUGS (13)
  1. SEROQUEL [Suspect]
     Indication: SCHIZOPHRENIA
     Dosage: 100 MG BID PO
     Route: 048
     Dates: start: 20040512, end: 20040516
  2. HALOPERIDOL [Suspect]
     Dates: start: 20020320, end: 20030729
  3. HALOPERIDOL [Suspect]
     Dosage: 3 MG BID PO
     Route: 048
     Dates: start: 20030730, end: 20040516
  4. LULLAN [Suspect]
     Dosage: 16 MG DAILY PO
     Route: 048
     Dates: start: 20021113, end: 20030805
  5. LULLAN [Suspect]
     Dosage: 32 MG DAILY PO
     Route: 048
     Dates: start: 20030806, end: 20040511
  6. LULLAN [Suspect]
     Dosage: 8 MG BID PO
     Route: 048
     Dates: start: 20040512, end: 20040516
  7. KYUFU GOLD [Suspect]
     Indication: UPPER RESPIRATORY TRACT INFLAMMATION
     Dates: start: 20040512, end: 20040516
  8. TASMOLIN [Concomitant]
  9. SILECE [Concomitant]
  10. AMOBAN [Concomitant]
  11. VITAMIN A [Concomitant]
  12. CIRCANETTEN [Concomitant]
  13. BORRAGINOL A [Concomitant]

REACTIONS (34)
  - ALANINE AMINOTRANSFERASE INCREASED [None]
  - ASCITES [None]
  - ASPARTATE AMINOTRANSFERASE INCREASED [None]
  - BLOOD BILIRUBIN INCREASED [None]
  - BLOOD CREATINE PHOSPHOKINASE INCREASED [None]
  - C-REACTIVE PROTEIN DECREASED [None]
  - COAGULATION FACTOR DECREASED [None]
  - COMA [None]
  - DELUSION [None]
  - DEPRESSED LEVEL OF CONSCIOUSNESS [None]
  - DISSEMINATED INTRAVASCULAR COAGULATION [None]
  - ENCEPHALOPATHY [None]
  - HAEMATEMESIS [None]
  - HAEMODIALYSIS [None]
  - HEPATIC ATROPHY [None]
  - HEPATIC FUNCTION ABNORMAL [None]
  - HEPATITIS FULMINANT [None]
  - HYPERHIDROSIS [None]
  - HYPOPROTEINAEMIA [None]
  - HYPOTENSION [None]
  - JAUNDICE [None]
  - LOSS OF CONSCIOUSNESS [None]
  - MENTAL STATUS CHANGES [None]
  - MULTI-ORGAN FAILURE [None]
  - MYOGLOBINURIA [None]
  - NEUROLEPTIC MALIGNANT SYNDROME [None]
  - OCULAR ICTERUS [None]
  - OVERDOSE [None]
  - PURPURA [None]
  - PYREXIA [None]
  - RENAL FAILURE [None]
  - TACHYCARDIA [None]
  - VOMITING [None]
  - WHITE BLOOD CELL COUNT DECREASED [None]
